FAERS Safety Report 16234911 (Version 1)
Quarter: 2019Q2

REPORT INFORMATION
  Report Type: Spontaneous
  Country: GB (occurrence: GB)
  Receive Date: 20190424
  Receipt Date: 20190424
  Transmission Date: 20190711
  Serious: Yes (Other)
  Sender: FDA-Public Use
  Company Number: GB-TEVA-2019-GB-1040961

PATIENT
  Age: 48 Year
  Sex: Female
  Weight: 48 kg

DRUGS (1)
  1. IBUPROFEN LYSINE. [Suspect]
     Active Substance: IBUPROFEN LYSINE
     Indication: BACK PAIN
     Route: 048
     Dates: start: 20190316, end: 20190316

REACTIONS (5)
  - Dizziness [Recovered/Resolved]
  - Swelling face [Recovered/Resolved]
  - Erythema [Recovered/Resolved]
  - Eye swelling [Recovered/Resolved]
  - Pruritus [Recovered/Resolved]

NARRATIVE: CASE EVENT DATE: 20190316
